FAERS Safety Report 19900480 (Version 1)
Quarter: 2021Q3

REPORT INFORMATION
  Report Type: Spontaneous
  Country: US (occurrence: US)
  Receive Date: 20210930
  Receipt Date: 20210930
  Transmission Date: 20211014
  Serious: Yes (Death)
  Sender: FDA-Public Use
  Company Number: None

PATIENT
  Age: 71 Year
  Sex: Male
  Weight: 55.9 kg

DRUGS (1)
  1. MEMANTINE HYDROCHLORIDE. [Suspect]
     Active Substance: MEMANTINE HYDROCHLORIDE
     Dates: end: 20210708

REACTIONS (8)
  - Fatigue [None]
  - Troponin increased [None]
  - Hypotension [None]
  - Blood lactic acid increased [None]
  - Respiratory rate increased [None]
  - Pneumonia [None]
  - Asthenia [None]
  - Tachycardia [None]

NARRATIVE: CASE EVENT DATE: 20210801
